FAERS Safety Report 4871848-4 (Version None)
Quarter: 2006Q1

REPORT INFORMATION
  Report Type: 
  Country: None (occurrence: None)
  Receive Date: 20060104
  Receipt Date: 20051010
  Transmission Date: 20060701
  Serious: Yes (Hospitalization)
  Sender: FDA-Public Use
  Company Number: PL-MERCK-0510POL00007

PATIENT
  Age: 72 Year
  Sex: Male
  Weight: 75 kg

DRUGS (5)
  1. VIOXX [Suspect]
     Indication: SHOULDER PAIN
     Route: 048
     Dates: start: 20031201, end: 20050601
  2. DOXAZOSIN MESYLATE [Concomitant]
     Indication: PROSTATISM
     Route: 048
     Dates: start: 19960101
  3. FUROSEMIDE [Concomitant]
     Indication: HYPERTENSION
     Route: 065
  4. METILDIGOXIN [Concomitant]
     Indication: PALPITATIONS
     Route: 065
  5. VERAPAMIL [Concomitant]
     Indication: HYPERTENSION
     Route: 065

REACTIONS (3)
  - ASTHENIA [None]
  - MYOCARDIAL INFARCTION [None]
  - ORCHITIS NONINFECTIVE [None]
